FAERS Safety Report 8487337-4 (Version None)
Quarter: 2012Q3

REPORT INFORMATION
  Report Type: 
  Country: None (occurrence: None)
  Receive Date: 20120705
  Receipt Date: 20120629
  Transmission Date: 20120928
  Serious: Yes (Hospitalization)
  Sender: FDA-Public Use
  Company Number: US-AMGEN-USASP2012040398

PATIENT
  Age: 60 Year
  Sex: Female

DRUGS (1)
  1. ENBREL [Suspect]
     Indication: RHEUMATOID ARTHRITIS
     Dosage: UNK
     Dates: start: 20091103, end: 20100101

REACTIONS (4)
  - IMPAIRED HEALING [None]
  - LYMPHOEDEMA [None]
  - FEMUR FRACTURE [None]
  - RHEUMATOID ARTHRITIS [None]
